FAERS Safety Report 23104830 (Version 2)
Quarter: 2023Q4

REPORT INFORMATION
  Report Type: Spontaneous
  Country: TR (occurrence: TR)
  Receive Date: 20231025
  Receipt Date: 20231031
  Transmission Date: 20240109
  Serious: Yes (Other)
  Sender: FDA-Public Use
  Company Number: TR-TEVA-2023-TR-2937969

PATIENT
  Age: 10 Year
  Sex: Male

DRUGS (2)
  1. METHYLPHENIDATE [Suspect]
     Active Substance: METHYLPHENIDATE
     Indication: Attention deficit hyperactivity disorder
     Dosage: 10 MILLIGRAM DAILY; CONTROLLED RELEASE
     Route: 065
  2. METHYLPHENIDATE [Suspect]
     Active Substance: METHYLPHENIDATE
     Indication: Intellectual disability
     Dosage: 20 MILLIGRAM DAILY; CONTROLLED RELEASE
     Route: 065

REACTIONS (3)
  - Nausea [Unknown]
  - Periorbital swelling [Recovering/Resolving]
  - Eye contusion [Recovering/Resolving]
